FAERS Safety Report 5602765-X (Version None)
Quarter: 2008Q1

REPORT INFORMATION
  Report Type: 
  Country: None (occurrence: None)
  Receive Date: 20080125
  Receipt Date: 20080111
  Transmission Date: 20080703
  Serious: Yes (Hospitalization, Other)
  Sender: FDA-Public Use
  Company Number: DE-ELI_LILLY_AND_COMPANY-DE200801002476

PATIENT
  Sex: Male

DRUGS (4)
  1. BYETTA [Suspect]
     Dosage: 5 UG, 2/D
     Route: 058
     Dates: start: 20071201
  2. METFORMIN HCL [Concomitant]
     Dosage: 1000 MG, UNKNOWN
     Route: 065
  3. AMARYL [Concomitant]
     Dosage: 3 MG, UNKNOWN
     Route: 065
  4. ASPIRIN [Concomitant]
     Dosage: UNK, UNKNOWN
     Route: 065

REACTIONS (2)
  - ABDOMINAL PAIN UPPER [None]
  - PANCREATITIS [None]
